FAERS Safety Report 9827592 (Version 1)
Quarter: 2014Q1

REPORT INFORMATION
  Report Type: Spontaneous
  Country: US (occurrence: US)
  Receive Date: 20140117
  Receipt Date: 20140117
  Transmission Date: 20141002
  Serious: Yes (Other)
  Sender: FDA-Public Use
  Company Number: US-PFIZER INC-2014013336

PATIENT
  Sex: Female

DRUGS (6)
  1. AMLODIPINE BESILATE [Suspect]
     Dosage: UNK
  2. PAROXETINE [Concomitant]
     Dosage: UNK
  3. GLIPIZIDE [Concomitant]
     Dosage: UNK
     Dates: start: 201312
  4. BUSPIRONE [Concomitant]
     Dosage: UNK
  5. PROPRANOLOL [Concomitant]
     Dosage: UNK
  6. ASPIRIN [Concomitant]
     Dosage: UNK

REACTIONS (2)
  - Diabetes mellitus [Unknown]
  - Diarrhoea [Unknown]
